FAERS Safety Report 4819835-6 (Version None)
Quarter: 2005Q4

REPORT INFORMATION
  Report Type: 
  Country: None (occurrence: None)
  Receive Date: 20051102
  Receipt Date: 20051013
  Transmission Date: 20060501
  Serious: Yes (Hospitalization)
  Sender: FDA-Public Use
  Company Number: 6017923

PATIENT
  Age: 81 Year
  Sex: Female

DRUGS (17)
  1. LEVOTHYROX 100 (TABLET) (LEVOTHYROXINE SODIUM) [Suspect]
     Dosage: 100,000 MCG (100 MCG,1 IN 1 D)
  2. BUFLOMEDIL (TABLET) (BUFLOMEDIL) [Suspect]
     Dosage: 1,00 DOSAGE FORMS (1 DOSAGE FORMS,1 IN 1 D)
     Dates: end: 20041227
  3. AUGMENTIN '250' [Suspect]
     Indication: PNEUMONIA
     Dosage: 3,00 GM (1GM,3 IN 1 D), INTRAVENOUS
     Route: 042
     Dates: start: 20041228, end: 20050105
  4. AUGMENTIN '250' [Suspect]
     Indication: PNEUMONIA
     Dosage: 3,00 GM (1GM,3 IN 1 D), INTRAVENOUS
     Route: 042
     Dates: start: 20050105, end: 20050107
  5. IZILOX (TABLET) (MOXIFLOXACIN) [Suspect]
     Indication: PNEUMONIA
     Dosage: 1,00 DOSAGE FORMS (1 DOSAGE FORMS,1 IN 1 D), ORAL
     Route: 048
     Dates: start: 20041229, end: 20050104
  6. CELECTOL (200 MG, TABLET) (CELIPROLOL) [Suspect]
     Indication: HYPERTENSIVE CARDIOMYOPATHY
     Dosage: 200,0000 MG (200 MG,1 IN 1 D), ORAL
     Route: 048
  7. AMLOR (5 MG, CAPSULE) (AMLODIPINE BESILATE) [Suspect]
     Indication: HYPERTENSIVE CARDIOMYOPATHY
     Dosage: 5,00 MG (5 MG,1 IN 1 D), ORAL
     Route: 048
  8. CALCIPARINE ^SANOFI^ (SOLUTION FOR INJECTION) (HEPARIN CALCIUM) [Suspect]
     Indication: DRUG USE FOR UNKNOWN INDICATION
     Dosage: SUBCUTANEOUS
     Route: 058
     Dates: start: 20041229
  9. INSULIN (SOLUTION FOR INJECTION)(INSULIN) [Suspect]
     Dosage: INTRAVENOUS
     Route: 042
     Dates: start: 20041229
  10. DIFFU K (CAPSULE) (POTASSIUM CHLORIDE) [Suspect]
     Indication: DRUG USE FOR UNKNOWN INDICATION
     Dosage: ORAL
     Route: 048
     Dates: end: 20041229
  11. LASILIX (40 MG, TABLET)(FUROSEMIDE) [Suspect]
     Indication: DRUG USE FOR UNKNOWN INDICATION
     Dosage: 40,00 MG (40 MG, 1 IN 1 D), ORAL
     Route: 048
     Dates: end: 20041229
  12. NOCTAMIDE (TABLET) (LORMETAZEPAM) [Suspect]
     Indication: DRUG USE FOR UNKNOWN INDICATION
     Dosage: 1,00 DOSAGE FORMS (1 DOSAGE FORMS, 1 IN 1 D),ORAL
     Route: 048
     Dates: end: 20041227
  13. CORENITEC (TABLET) (HYDROCHLOROTHIAZIDE,ENALAPRIL MALEATE) [Suspect]
     Indication: DRUG USE FOR UNKNOWN INDICATION
     Dosage: 1,00 DOSAGE FORMS (1 DOSAGE FORMS,1 IN 1 D),ORAL
     Route: 048
  14. ELISOR (TABLET) (PRAVASTATIN SODIUM) [Suspect]
     Indication: DRUG USE FOR UNKNOWN INDICATION
     Dosage: 1,00 DOSAGE FORMS (1 DOSAGE FORMS, 1 IN 1 D), ORAL
     Route: 048
     Dates: end: 20050101
  15. ARESTAL (TABLET) (LOPERAMIDE OXIDE) [Suspect]
     Indication: DRUG USE FOR UNKNOWN INDICATION
     Dosage: 3 DOSAGE FORMS (3 DOSAGE FORMS, 1 D), ORAL
     Route: 048
     Dates: end: 20041227
  16. UMULINE (SOLUTION FOR INJECTION) (INSULIN HUMAN ZINC SUSPENSION) [Suspect]
     Indication: DRUG USE FOR UNKNOWN INDICATION
     Dosage: SUBCUTANEOUS
     Route: 058
  17. HUMALOG [Suspect]
     Indication: DRUG USE FOR UNKNOWN INDICATION
     Dosage: SUBCUTANEOUS
     Route: 058

REACTIONS (8)
  - BLOOD ALKALINE PHOSPHATASE INCREASED [None]
  - CARDIAC FAILURE [None]
  - CHOLESTASIS [None]
  - CYTOLYTIC HEPATITIS [None]
  - FALL [None]
  - GAMMA-GLUTAMYLTRANSFERASE INCREASED [None]
  - MALAISE [None]
  - PNEUMONIA [None]
